FAERS Safety Report 4674969-4 (Version None)
Quarter: 2005Q2

REPORT INFORMATION
  Report Type: 
  Country: None (occurrence: None)
  Receive Date: 20050525
  Receipt Date: 20050512
  Transmission Date: 20051028
  Serious: Yes (Hospitalization)
  Sender: FDA-Public Use
  Company Number: 214011

PATIENT
  Age: 75 Year
  Sex: Male

DRUGS (8)
  1. AVASTIN [Suspect]
     Indication: COLORECTAL CANCER METASTATIC
     Dosage: 5 MG/KG, Q2W, INTRAVENOUS
     Route: 042
     Dates: start: 20041119, end: 20050401
  2. FLUOROURACIL [Concomitant]
  3. LEUCOVORIN CALCIUM [Concomitant]
  4. LASIX [Concomitant]
  5. COUMADIN [Concomitant]
  6. COREG [Concomitant]
  7. ZOCOR [Concomitant]
  8. POTASSIUM (POTASSIUM NOS) [Concomitant]

REACTIONS (17)
  - ACTINIC KERATOSIS [None]
  - AORTIC ATHEROSCLEROSIS [None]
  - BALANCE DISORDER [None]
  - BRADYCARDIA [None]
  - CARDIOMEGALY [None]
  - CARDIOMYOPATHY [None]
  - COMPRESSION FRACTURE [None]
  - EJECTION FRACTION DECREASED [None]
  - HERPES SIMPLEX [None]
  - HYPOTENSION [None]
  - LUNG INFECTION [None]
  - MITRAL VALVE INCOMPETENCE [None]
  - OEDEMA PERIPHERAL [None]
  - SYNCOPE [None]
  - TRICUSPID VALVE INCOMPETENCE [None]
  - UPPER RESPIRATORY TRACT INFECTION [None]
  - VENTRICULAR HYPOKINESIA [None]
